FAERS Safety Report 22069771 (Version 2)
Quarter: 2023Q2

REPORT INFORMATION
  Report Type: Spontaneous
  Country: US (occurrence: US)
  Receive Date: 20230307
  Receipt Date: 20230427
  Transmission Date: 20230721
  Serious: Yes (Other)
  Sender: FDA-Public Use
  Company Number: US-PFIZER INC-PV202300040501

PATIENT
  Sex: Female

DRUGS (1)
  1. GENOTROPIN [Suspect]
     Active Substance: SOMATROPIN
     Dosage: UNK

REACTIONS (5)
  - Accidental exposure to product [Unknown]
  - Exposure via eye contact [Unknown]
  - Dry eye [Unknown]
  - Feeling abnormal [Unknown]
  - Oropharyngeal discomfort [Unknown]
